FAERS Safety Report 6242632-4 (Version None)
Quarter: 2009Q2

REPORT INFORMATION
  Report Type: 
  Country: None (occurrence: None)
  Receive Date: 20090622
  Receipt Date: 20090622
  Transmission Date: 20091009
  Serious: No
  Sender: FDA-Public Use
  Company Number: None

PATIENT
  Age: 38 Year
  Sex: Female
  Weight: 52.1637 kg

DRUGS (1)
  1. VENLAFXINE HCL 225 MG 24 HR SA TAB [Suspect]
     Indication: MAJOR DEPRESSION
     Dosage: 225 MG X 2 PILLS QD DAILY PO
     Route: 048
     Dates: start: 20090528, end: 20090618

REACTIONS (8)
  - ANXIETY [None]
  - APATHY [None]
  - DISTURBANCE IN ATTENTION [None]
  - DIZZINESS [None]
  - DYSPNOEA [None]
  - HEADACHE [None]
  - IRRITABILITY [None]
  - SLEEP DISORDER [None]
